FAERS Safety Report 5377957-8 (Version None)
Quarter: 2007Q2

REPORT INFORMATION
  Report Type: 
  Country: None (occurrence: None)
  Receive Date: 20070629
  Receipt Date: 20070622
  Transmission Date: 20071010
  Serious: Yes (Hospitalization)
  Sender: FDA-Public Use
  Company Number: FEI2007-1061

PATIENT
  Age: 37 Year
  Sex: Female
  Weight: 62.1428 kg

DRUGS (11)
  1. INTRAUTERINE COPPER CONTRACEPTIVE [Suspect]
     Indication: CONTRACEPTION
     Dosage: INTRA-UTERINE
     Route: 015
     Dates: start: 20070529, end: 20070616
  2. SERZONE [Concomitant]
  3. SYNTHROID [Concomitant]
  4. CELEXA [Concomitant]
  5. BENTYL [Concomitant]
  6. PREVACID [Concomitant]
  7. TOPAMAX [Concomitant]
  8. ATIVAN [Concomitant]
  9. LORATAB (LORATADINE) [Concomitant]
  10. SONATA [Concomitant]
  11. NAPROXEN SODIUM [Concomitant]

REACTIONS (3)
  - ENDOMETRITIS [None]
  - INTRA-UTERINE CONTRACEPTIVE DEVICE EXPELLED [None]
  - VAGINAL DISCHARGE [None]
